FAERS Safety Report 5091094-1 (Version None)
Quarter: 2006Q3

REPORT INFORMATION
  Report Type: 
  Country: None (occurrence: None)
  Receive Date: 20060726
  Receipt Date: 19931202
  Transmission Date: 20061208
  Serious: Yes (Hospitalization)
  Sender: FDA-Public Use
  Company Number: NLL024001604

PATIENT
  Age: 51 Year
  Sex: Female

DRUGS (5)
  1. MORPHINE SULFATE [Suspect]
     Dosage: 15 MG, DAILY, ORAL
     Route: 048
  2. SOMA [Concomitant]
  3. ELAVIL [Concomitant]
  4. PROZAC [Concomitant]
  5. TENORMIN [Concomitant]

REACTIONS (1)
  - RESPIRATORY DEPRESSION [None]
